FAERS Safety Report 8920751 (Version 1)
Quarter: 2012Q4

REPORT INFORMATION
  Report Type: 
  Country: US (occurrence: US)
  Receive Date: 20121121
  Receipt Date: 20121121
  Transmission Date: 20130627
  Serious: No
  Sender: FDA-Public Use
  Company Number: US-PFIZER INC-2012292022

PATIENT
  Age: 45 Year
  Sex: Female
  Weight: 109 kg

DRUGS (4)
  1. LYRICA [Suspect]
     Indication: FIBROMYALGIA
     Dosage: 150 mg, 2x/day
     Route: 048
  2. LORTAB [Concomitant]
     Dosage: UNK
  3. XANAX [Concomitant]
     Dosage: UNK
  4. TENORMIN [Concomitant]
     Dosage: UNK

REACTIONS (2)
  - Contusion [Recovering/Resolving]
  - Impaired healing [Unknown]
